FAERS Safety Report 11061542 (Version 4)
Quarter: 2015Q3

REPORT INFORMATION
  Report Type: Spontaneous
  Country: US (occurrence: US)
  Receive Date: 20150424
  Receipt Date: 20150730
  Transmission Date: 20151125
  Serious: No
  Sender: FDA-Public Use
  Company Number: US-PFIZER INC-2015103432

PATIENT
  Age: 54 Year
  Sex: Male
  Weight: 104 kg

DRUGS (3)
  1. BOSULIF [Suspect]
     Active Substance: BOSUTINIB MONOHYDRATE
     Dosage: 500 MG, UNK
     Dates: start: 20141209
  2. ANAPROX [Concomitant]
     Active Substance: NAPROXEN SODIUM
     Dosage: 220 MG, 2X/DAY (WITH MEALS)
     Route: 048
  3. BOSULIF [Suspect]
     Active Substance: BOSUTINIB MONOHYDRATE
     Indication: CHRONIC MYELOID LEUKAEMIA
     Dosage: 500 MG, 1X/DAY (WITH BREAKFAST)
     Route: 048
     Dates: start: 20140102

REACTIONS (12)
  - Erythema [Unknown]
  - Eczema [Unknown]
  - Wound [Unknown]
  - Diarrhoea [Recovering/Resolving]
  - Abdominal pain [Recovering/Resolving]
  - Abdominal discomfort [Unknown]
  - Oedema [Unknown]
  - Scar [Unknown]
  - Dry skin [Unknown]
  - Stasis dermatitis [Unknown]
  - Rash [Unknown]
  - Fluid retention [Unknown]
